FAERS Safety Report 12388820 (Version 1)
Quarter: 2016Q2

REPORT INFORMATION
  Report Type: Report from Study
  Country: US (occurrence: US)
  Receive Date: 20160520
  Receipt Date: 20160520
  Transmission Date: 20160902
  Serious: No
  Sender: FDA-Public Use
  Company Number: US-MDT-ADR-2016-00088

PATIENT
  Age: 68 Year
  Sex: Male

DRUGS (8)
  1. BUPIVACAINE. [Suspect]
     Dosage: 4.1018 MG/DAY
     Route: 037
     Dates: end: 20150910
  2. CLONIDINE. [Suspect]
     Active Substance: CLONIDINE
     Dosage: 112.47 MCG/DAY
     Route: 037
     Dates: end: 20150910
  3. COMPOUNDED BACLOFEN [Suspect]
     Active Substance: BACLOFEN
     Dosage: 224.94 MCG/DAY
     Route: 037
     Dates: start: 20150910
  4. BUPIVACAINE. [Suspect]
     Dosage: 4.4987 MG/DAY
     Route: 037
     Dates: start: 20150910
  5. COMPOUNDED BACLOFEN [Suspect]
     Active Substance: BACLOFEN
     Dosage: 224.94 MCG/DAY
     Route: 037
     Dates: end: 20150910
  6. CLONIDINE. [Suspect]
     Active Substance: CLONIDINE
     Dosage: 102.54 MCG/DAY
     Route: 037
     Dates: start: 20150910
  7. HYDROMORPHONE [Suspect]
     Active Substance: HYDROMORPHONE
     Dosage: 0.8997 MG/DAY
     Route: 037
     Dates: end: 20150910
  8. HYDROMORPHONE [Suspect]
     Active Substance: HYDROMORPHONE
     Dosage: 0.8997 MG/DAY
     Route: 037
     Dates: start: 20150910

REACTIONS (1)
  - Hypoaesthesia [Recovered/Resolved]

NARRATIVE: CASE EVENT DATE: 20150915
